FAERS Safety Report 7442750-9 (Version None)
Quarter: 2011Q2

REPORT INFORMATION
  Report Type: 
  Country: None (occurrence: None)
  Receive Date: 20110428
  Receipt Date: 20110427
  Transmission Date: 20111010
  Serious: Yes (Hospitalization, Other)
  Sender: FDA-Public Use
  Company Number: US-JNJFOC-20110404370

PATIENT
  Sex: Male
  Weight: 68.04 kg

DRUGS (7)
  1. FENTANYL-100 [Suspect]
     Indication: PAIN
     Dosage: 50 UG/HR, 2 PATCHES EVERY 2-3 DAYS
     Route: 062
  2. CYCLOBENZAPRINE [Suspect]
     Indication: MUSCLE TIGHTNESS
     Route: 065
  3. PERCOCET [Concomitant]
     Indication: PAIN
     Dosage: 10-325MG, ONE TABLET EVERY 4 HOURS OR AS NEEDED.
     Route: 048
  4. UNKNOWN MEDICATION [Suspect]
     Indication: PRODUCT USED FOR UNKNOWN INDICATION
     Route: 065
  5. FENTANYL [Suspect]
     Indication: PAIN
     Dosage: 2 PATCHES OF 50UG/HR
     Route: 062
  6. FENTANYL [Suspect]
     Dosage: INITIATED IN 2000 OR 2001
     Route: 062
  7. DURAGESIC [Suspect]
     Dosage: 1-2 PATCHES EVERY 2-3 DAYS
     Route: 062

REACTIONS (9)
  - WEIGHT DECREASED [None]
  - INCORRECT DOSE ADMINISTERED [None]
  - FEELING ABNORMAL [None]
  - ADVERSE DRUG REACTION [None]
  - INAPPROPRIATE SCHEDULE OF DRUG ADMINISTRATION [None]
  - PAIN [None]
  - DYSPNOEA [None]
  - HEADACHE [None]
  - DRUG INEFFECTIVE [None]
